FAERS Safety Report 5201552-4 (Version None)
Quarter: 2007Q1

REPORT INFORMATION
  Report Type: 
  Country: None (occurrence: None)
  Receive Date: 20070108
  Receipt Date: 20061227
  Transmission Date: 20070707
  Serious: Yes (Life-Threatening)
  Sender: FDA-Public Use
  Company Number: JP-PFIZER INC-2006156092

PATIENT
  Sex: Male

DRUGS (17)
  1. ADRIAMYCIN PFS [Suspect]
     Indication: LYMPHOMA
     Dosage: DAILY DOSE:40MG
     Route: 042
     Dates: start: 20060811, end: 20060811
  2. ADRIAMYCIN PFS [Suspect]
     Dosage: DAILY DOSE:40MG
     Route: 042
     Dates: start: 20060825, end: 20060825
  3. ADRIAMYCIN PFS [Suspect]
     Dosage: DAILY DOSE:50MG
     Route: 042
     Dates: start: 20060915, end: 20060915
  4. RITUXAN [Suspect]
     Indication: LYMPHOMA
     Dosage: DAILY DOSE:500MG
     Route: 042
     Dates: start: 20060804, end: 20060804
  5. RITUXAN [Suspect]
     Dosage: DAILY DOSE:500MG
     Route: 042
     Dates: start: 20060818, end: 20060818
  6. RITUXAN [Suspect]
     Dosage: DAILY DOSE:500MG
     Route: 042
     Dates: start: 20060914, end: 20060914
  7. ENDOXAN [Suspect]
     Indication: LYMPHOMA
     Dosage: DAILY DOSE:600MG
     Route: 042
     Dates: start: 20060811, end: 20060811
  8. ENDOXAN [Suspect]
     Dosage: DAILY DOSE:600MG
     Route: 042
     Dates: start: 20060825, end: 20060825
  9. ENDOXAN [Suspect]
     Dosage: DAILY DOSE:750MG
     Route: 042
     Dates: start: 20060915, end: 20060915
  10. ONCOVIN [Concomitant]
     Dosage: DAILY DOSE:1.1MG
     Route: 042
     Dates: start: 20060811, end: 20060811
  11. ONCOVIN [Concomitant]
     Dosage: DAILY DOSE:1.1MG
     Route: 042
     Dates: start: 20060825, end: 20060825
  12. ONCOVIN [Concomitant]
     Dosage: DAILY DOSE:1.4MG
     Route: 042
     Dates: start: 20060915, end: 20060915
  13. PREDNISOLONE [Concomitant]
     Dosage: DAILY DOSE:100MG
     Route: 048
     Dates: start: 20060730, end: 20060803
  14. PREDNISOLONE [Concomitant]
     Dosage: DAILY DOSE:50MG
     Route: 048
     Dates: start: 20060811, end: 20060815
  15. PREDNISOLONE [Concomitant]
     Dosage: DAILY DOSE:50MG
     Route: 048
     Dates: start: 20060825, end: 20060829
  16. PREDNISOLONE [Concomitant]
     Dosage: DAILY DOSE:50MG
     Route: 048
     Dates: start: 20060915, end: 20060919
  17. PARIET [Concomitant]
     Dosage: DAILY DOSE:10MG
     Route: 048
     Dates: start: 20060726, end: 20060928

REACTIONS (2)
  - INTERSTITIAL LUNG DISEASE [None]
  - LYMPHOCYTE STIMULATION TEST POSITIVE [None]
